FAERS Safety Report 22053986 (Version 2)
Quarter: 2023Q2

REPORT INFORMATION
  Report Type: Spontaneous
  Country: DE (occurrence: DE)
  Receive Date: 20230302
  Receipt Date: 20230404
  Transmission Date: 20230722
  Serious: Yes (Other)
  Sender: FDA-Public Use
  Company Number: DE-MAYNE PHARMA-2023TMD00090

PATIENT
  Age: 48 Year
  Sex: Female

DRUGS (2)
  1. BIJUVA [Suspect]
     Active Substance: ESTRADIOL\PROGESTERONE
     Indication: Menopausal symptoms
     Dosage: 1 DOSAGE FORM, 1X/DAY
     Route: 048
     Dates: start: 20230112, end: 20230204
  2. MOXONIDINE [Concomitant]
     Active Substance: MOXONIDINE
     Indication: Hypertension
     Dosage: EVERY 2 DAYS (2X1)
     Dates: start: 202207

REACTIONS (3)
  - Hypertensive crisis [Recovered/Resolved]
  - Headache [Recovered/Resolved]
  - Dizziness [Recovered/Resolved]

NARRATIVE: CASE EVENT DATE: 20230112
